FAERS Safety Report 18742308 (Version 1)
Quarter: 2021Q1

REPORT INFORMATION
  Report Type: Spontaneous
  Country: US (occurrence: US)
  Receive Date: 20210114
  Receipt Date: 20210114
  Transmission Date: 20210419
  Serious: Yes (Death, Hospitalization)
  Sender: FDA-Public Use
  Company Number: US-PFIZER INC-2021018379

PATIENT
  Age: 52 Year
  Sex: Female

DRUGS (2)
  1. FOMEPIZOLE. [Suspect]
     Active Substance: FOMEPIZOLE
     Indication: ALCOHOL POISONING
     Dosage: UNK
  2. ACETYLCYSTEINE. [Suspect]
     Active Substance: ACETYLCYSTEINE
     Indication: ALCOHOL POISONING
     Dosage: UNK

REACTIONS (1)
  - Drug ineffective [Fatal]

NARRATIVE: CASE EVENT DATE: 2019
